FAERS Safety Report 5384533-X (Version None)
Quarter: 2007Q3

REPORT INFORMATION
  Report Type: 
  Country: None (occurrence: None)
  Receive Date: 20070711
  Receipt Date: 20060829
  Transmission Date: 20080115
  Serious: No
  Sender: FDA-Public Use
  Company Number: US-AMGEN-KDL191732

PATIENT
  Sex: Female

DRUGS (4)
  1. KINERET [Suspect]
     Indication: RHEUMATOID ARTHRITIS
     Route: 058
     Dates: start: 20040101
  2. ARAVA [Concomitant]
  3. PLAQUENIL [Concomitant]
  4. SULFASALAZINE [Concomitant]
     Dates: start: 20060801

REACTIONS (5)
  - CONDITION AGGRAVATED [None]
  - DEPRESSION [None]
  - INJECTION SITE IRRITATION [None]
  - INJECTION SITE REACTION [None]
  - RHEUMATOID ARTHRITIS [None]
